FAERS Safety Report 18282422 (Version 1)
Quarter: 2020Q3

REPORT INFORMATION
  Report Type: Spontaneous
  Country: US (occurrence: US)
  Receive Date: 20200918
  Receipt Date: 20200918
  Transmission Date: 20201103
  Serious: Yes (Other)
  Sender: FDA-Public Use
  Company Number: None

PATIENT
  Age: 66 Year
  Sex: Male

DRUGS (2)
  1. N/A [Concomitant]
     Active Substance: UNSPECIFIED INGREDIENT
  2. IMPAVIDO [Suspect]
     Active Substance: MILTEFOSINE
     Indication: ULCERATIVE KERATITIS
     Route: 048
     Dates: start: 20200312

REACTIONS (2)
  - Therapy interrupted [None]
  - Blindness [None]
